FAERS Safety Report 8608049 (Version 2)
Quarter: 2012Q4

REPORT INFORMATION
  Report Type: 
  Country: CO (occurrence: CO)
  Receive Date: 20120611
  Receipt Date: 20121212
  Transmission Date: 20130627
  Serious: Yes (Hospitalization, Other)
  Sender: FDA-Public Use
  Company Number: CO-AMGEN-COLCT2011017068

PATIENT
  Age: 50 Year
  Sex: Female

DRUGS (8)
  1. ETANERCEPT [Suspect]
     Indication: RHEUMATOID ARTHRITIS
     Dosage: 50 mg, qwk
     Route: 058
     Dates: start: 2008
  2. METHOTREXATE [Concomitant]
     Indication: RHEUMATOID ARTHRITIS
     Dosage: 6 tablets of 2.5mg, weekly
     Route: 048
     Dates: start: 2002
  3. LEVOTHYROXINE [Concomitant]
     Indication: THYROID DISORDER
     Dosage: 50 mg, UNK
  4. PREDNISOLONE [Concomitant]
     Indication: RHEUMATOID ARTHRITIS
     Dosage: 1 capsule daily of 5 mg orally
     Route: 048
     Dates: start: 20090106
  5. PREDNISOLONE [Concomitant]
     Indication: ASTHMA
  6. DICLOFENAC [Concomitant]
     Indication: INFLAMMATION
     Dosage: 1 capsule of 50 mg once a day orally
     Route: 048
     Dates: start: 200801
  7. ACETAMINOPHEN [Concomitant]
     Dosage: 500 mg, UNK
     Route: 065
  8. SALBUTAMOL [Concomitant]
     Dosage: 100 ml, UNK

REACTIONS (9)
  - Back pain [Not Recovered/Not Resolved]
  - Increased upper airway secretion [Recovering/Resolving]
  - Cough [Not Recovered/Not Resolved]
  - Asthmatic crisis [Not Recovered/Not Resolved]
  - Depression [Not Recovered/Not Resolved]
  - Anaemia [Not Recovered/Not Resolved]
  - Somnolence [Unknown]
  - Therapeutic response unexpected [Not Recovered/Not Resolved]
  - Pain [Not Recovered/Not Resolved]
